FAERS Safety Report 6760557-2 (Version None)
Quarter: 2010Q2

REPORT INFORMATION
  Report Type: 
  Country: None (occurrence: None)
  Receive Date: 20100607
  Receipt Date: 20100607
  Transmission Date: 20101027
  Serious: Yes (Hospitalization)
  Sender: FDA-Public Use
  Company Number: None

PATIENT
  Age: 28 Year
  Sex: Male
  Weight: 68.0396 kg

DRUGS (1)
  1. HALOPERIDOL [Suspect]
     Dosage: 20 MG DAILY
     Dates: start: 20080513

REACTIONS (5)
  - NAUSEA [None]
  - NEUROLEPTIC MALIGNANT SYNDROME [None]
  - PYREXIA [None]
  - VIRAL INFECTION [None]
  - VOMITING [None]
